FAERS Safety Report 6676393-1 (Version None)
Quarter: 2010Q2

REPORT INFORMATION
  Report Type: 
  Country: None (occurrence: None)
  Receive Date: 20100412
  Receipt Date: 20100330
  Transmission Date: 20101027
  Serious: Yes (Other)
  Sender: FDA-Public Use
  Company Number: PHHY2010DE16324

PATIENT
  Sex: Female

DRUGS (1)
  1. EMSELEX EXTENDED RELEASE [Suspect]
     Indication: INCONTINENCE
     Dosage: 7.5 MG PER DAY
     Route: 048
     Dates: start: 20100101, end: 20100322

REACTIONS (2)
  - LAPAROSCOPY [None]
  - NAUSEA [None]
